FAERS Safety Report 4936216-5 (Version None)
Quarter: 2006Q1

REPORT INFORMATION
  Report Type: 
  Country: None (occurrence: None)
  Receive Date: 20060307
  Receipt Date: 20051209
  Transmission Date: 20060701
  Serious: No
  Sender: FDA-Public Use
  Company Number: US-GLAXOSMITHKLINE-A0585252A

PATIENT
  Age: 66 Year
  Sex: Female

DRUGS (4)
  1. REQUIP [Suspect]
     Indication: RESTLESS LEGS SYNDROME
     Dosage: .25MG PER DAY
     Route: 048
     Dates: start: 20051208, end: 20051208
  2. SYNTHROID [Concomitant]
  3. CALCIUM GLUCONATE [Concomitant]
  4. MULTI-VITAMIN [Concomitant]

REACTIONS (7)
  - ABDOMINAL PAIN [None]
  - ABDOMINAL PAIN UPPER [None]
  - DRUG INEFFECTIVE [None]
  - DYSPEPSIA [None]
  - ERUCTATION [None]
  - MUSCULOSKELETAL DISCOMFORT [None]
  - RESTLESS LEGS SYNDROME [None]
